FAERS Safety Report 20515009 (Version 1)
Quarter: 2022Q1

REPORT INFORMATION
  Report Type: Spontaneous
  Country: US (occurrence: US)
  Receive Date: 20220224
  Receipt Date: 20220224
  Transmission Date: 20220423
  Serious: No
  Sender: FDA-Public Use
  Company Number: US-SA-SAC20220217001075

PATIENT
  Sex: Male

DRUGS (1)
  1. DUPIXENT [Suspect]
     Active Substance: DUPILUMAB
     Indication: Dermatitis atopic
     Dosage: 300 MG, QOW
     Route: 058
     Dates: start: 20191203

REACTIONS (7)
  - Eye discharge [Unknown]
  - Fear of injection [Unknown]
  - Feeling abnormal [Unknown]
  - Decreased appetite [Unknown]
  - Anxiety [Unknown]
  - Eye pruritus [Unknown]
  - Dry eye [Unknown]
